FAERS Safety Report 8808111 (Version 1)
Quarter: 2012Q4

REPORT INFORMATION
  Report Type: 
  Country: DK (occurrence: FR)
  Receive Date: 20120925
  Receipt Date: 20120925
  Transmission Date: 20130627
  Serious: Yes (Hospitalization)
  Sender: FDA-Public Use
  Company Number: FR-FRI-1000038879

PATIENT
  Age: 89 Year
  Sex: Male

DRUGS (6)
  1. ESCITALOPRAM [Suspect]
     Dosage: 20 mg
     Route: 048
     Dates: start: 2008, end: 20110911
  2. RISPERDAL [Suspect]
     Dosage: 0.5 mg
     Route: 048
     Dates: start: 20110910, end: 20110911
  3. DUROGESIC [Suspect]
     Dosage: 25 mcg
     Route: 062
     Dates: start: 20110719, end: 20110911
  4. ZOLPIDEM [Suspect]
     Route: 048
     Dates: start: 20110828, end: 20110911
  5. RIVOTRIL [Suspect]
     Dosage: 2.5 mg/mL - 4 drops daily
     Route: 048
     Dates: end: 20120911
  6. MODURETIC [Concomitant]
     Dates: start: 20110906

REACTIONS (3)
  - Hallucination, visual [Recovered/Resolved]
  - Confusional state [Recovered/Resolved]
  - General physical health deterioration [Recovered/Resolved]
